FAERS Safety Report 6218426-2 (Version None)
Quarter: 2009Q2

REPORT INFORMATION
  Report Type: 
  Country: None (occurrence: None)
  Receive Date: 20090604
  Receipt Date: 20090604
  Transmission Date: 20091009
  Serious: Yes (Other)
  Sender: FDA-Public Use
  Company Number: None

PATIENT
  Sex: Female
  Weight: 58.6 kg

DRUGS (1)
  1. OPTIRAY 320 [Suspect]
     Indication: COMPUTERISED TOMOGRAM
     Dosage: 120ML
     Dates: start: 20090514, end: 20090514

REACTIONS (1)
  - WHEEZING [None]
